FAERS Safety Report 5928608-2 (Version None)
Quarter: 2008Q4

REPORT INFORMATION
  Report Type: 
  Country: None (occurrence: None)
  Receive Date: 20081023
  Receipt Date: 20081016
  Transmission Date: 20090506
  Serious: Yes (Death, Hospitalization)
  Sender: FDA-Public Use
  Company Number: JP-ABBOTT-08P-087-0480802-00

PATIENT
  Age: 86 Year
  Sex: Male
  Weight: 60 kg

DRUGS (11)
  1. LEUPROLIDE ACETATE [Suspect]
     Indication: PROSTATE CANCER STAGE II
     Dates: start: 20051226, end: 20060605
  2. LEUPROLIDE ACETATE [Suspect]
     Route: 050
     Dates: start: 20060807, end: 20080128
  3. BICALUTAMIDE [Concomitant]
     Indication: PROSTATE CANCER STAGE II
     Route: 048
     Dates: start: 20061122, end: 20070930
  4. FLUTAMIDE [Concomitant]
     Indication: PROSTATE CANCER STAGE II
     Route: 048
     Dates: start: 20071001, end: 20071125
  5. DEXAMETHASONE [Concomitant]
     Indication: PROSTATE CANCER STAGE II
     Route: 048
     Dates: start: 20071126, end: 20080311
  6. WARFARIN SODIUM [Concomitant]
     Indication: ATRIAL FIBRILLATION
     Route: 048
     Dates: end: 20070820
  7. FAMOTIDINE [Concomitant]
     Indication: GASTRITIS
     Route: 048
     Dates: end: 20080217
  8. DIGOXIN [Concomitant]
     Indication: CARDIAC FAILURE
     Route: 048
     Dates: end: 20080217
  9. FUROSEMIDE [Concomitant]
     Indication: CARDIAC FAILURE
     Route: 048
     Dates: end: 20080221
  10. TIAPRIDE HYDROCHLORIDE [Concomitant]
     Indication: DEMENTIA
     Route: 048
     Dates: end: 20080217
  11. MAGNESIUM OXIDE [Concomitant]
     Indication: CONSTIPATION
     Route: 048
     Dates: end: 20080217

REACTIONS (1)
  - CARDIAC FAILURE [None]
